FAERS Safety Report 7319576-X (Version None)
Quarter: 2011Q1

REPORT INFORMATION
  Report Type: 
  Country: None (occurrence: None)
  Receive Date: 20110228
  Receipt Date: 20100528
  Transmission Date: 20110831
  Serious: No
  Sender: FDA-Public Use
  Company Number: A0862004A

PATIENT
  Age: 46 Year
  Sex: Female

DRUGS (13)
  1. SUCRALFATE [Concomitant]
  2. ALLEGRA D 24 HOUR [Concomitant]
  3. COZAAR [Concomitant]
  4. PROMETHAZINE [Concomitant]
  5. NITROGLYCERIN [Concomitant]
  6. KLOR-CON M [Concomitant]
  7. ADVAIR DISKUS 100/50 [Concomitant]
  8. HYDROXYZINE [Concomitant]
  9. RANITIDINE HCL [Concomitant]
  10. LAMICTAL [Suspect]
     Indication: EPILEPSY
     Dosage: 200MG VARIABLE DOSE
     Route: 048
     Dates: start: 20090701
  11. HYDROCODONE BITARTRATE + ACETAMINOPHEN [Suspect]
  12. ASPIRIN [Concomitant]
  13. METOCLOPRAMIDE HCL [Concomitant]

REACTIONS (1)
  - VISUAL FIELD DEFECT [None]
